FAERS Safety Report 5769894-1 (Version None)
Quarter: 2008Q2

REPORT INFORMATION
  Report Type: 
  Country: None (occurrence: None)
  Receive Date: 20080613
  Receipt Date: 20080414
  Transmission Date: 20081010
  Serious: No
  Sender: FDA-Public Use
  Company Number: US-ABBOTT-08P-163-0447037-00

PATIENT
  Sex: Male
  Weight: 122.7 kg

DRUGS (3)
  1. HUMIRA [Suspect]
     Indication: PSORIASIS
     Route: 058
     Dates: start: 20080407, end: 20080407
  2. HUMIRA [Suspect]
     Route: 058
     Dates: start: 20080414, end: 20080414
  3. HUMIRA [Suspect]
     Route: 058
     Dates: start: 20080428

REACTIONS (3)
  - PSORIASIS [None]
  - SKIN EXFOLIATION [None]
  - SKIN LESION [None]
